FAERS Safety Report 15940876 (Version 2)
Quarter: 2019Q2

REPORT INFORMATION
  Report Type: Spontaneous
  Country: US (occurrence: US)
  Receive Date: 20190208
  Receipt Date: 20190426
  Transmission Date: 20190711
  Serious: Yes (Other)
  Sender: FDA-Public Use
  Company Number: US-SA-2019SA035307

PATIENT
  Age: 33 Year
  Sex: Female
  Weight: 58.97 kg

DRUGS (11)
  1. TAMOXIFEN [Concomitant]
     Active Substance: TAMOXIFEN
     Dosage: UNK
     Dates: start: 20150801, end: 20160503
  2. TAXOTERE [Suspect]
     Active Substance: DOCETAXEL
     Indication: BREAST CANCER FEMALE
     Dosage: 140 MG, Q3W
     Route: 042
     Dates: start: 20150313, end: 20150313
  3. NEULASTA [Concomitant]
     Active Substance: PEGFILGRASTIM
  4. LOPERAMIDE [Concomitant]
     Active Substance: LOPERAMIDE
  5. PARAPLATIN [Concomitant]
     Active Substance: CARBOPLATIN
  6. VICODIN [Concomitant]
     Active Substance: ACETAMINOPHEN\HYDROCODONE BITARTRATE
  7. HERCEPTIN [Concomitant]
     Active Substance: TRASTUZUMAB
  8. ONDANSETRON [Concomitant]
     Active Substance: ONDANSETRON
  9. DOXYCYCLINE. [Concomitant]
     Active Substance: DOXYCYCLINE
  10. EMLA [LIDOCAINE;PRILOCAINE] [Concomitant]
  11. TAXOTERE [Suspect]
     Active Substance: DOCETAXEL
     Dosage: 140 MG, Q3W
     Route: 042
     Dates: start: 20150626, end: 20150626

REACTIONS (1)
  - Alopecia [Not Recovered/Not Resolved]

NARRATIVE: CASE EVENT DATE: 20151226
